FAERS Safety Report 5652506-5 (Version None)
Quarter: 2008Q1

REPORT INFORMATION
  Report Type: 
  Country: None (occurrence: None)
  Receive Date: 20080306
  Receipt Date: 20080226
  Transmission Date: 20080703
  Serious: Yes (Other)
  Sender: FDA-Public Use
  Company Number: BR-JNJFOC-20080206821

PATIENT
  Age: 50 Year
  Sex: Male
  Weight: 80 kg

DRUGS (3)
  1. HALDOL [Suspect]
     Indication: CONVULSION
     Route: 048
  2. CARBAMAZEPINE [Concomitant]
     Indication: CONVULSION
     Route: 048
  3. RIVOTRIL [Concomitant]
     Indication: CONVULSION
     Route: 048

REACTIONS (2)
  - DEPRESSION [None]
  - WEIGHT INCREASED [None]
